FAERS Safety Report 14494988 (Version 1)
Quarter: 2018Q1

REPORT INFORMATION
  Report Type: Spontaneous
  Country: US (occurrence: US)
  Receive Date: 20180206
  Receipt Date: 20180206
  Transmission Date: 20180509
  Serious: No
  Sender: FDA-Public Use
  Company Number: US-009507513-1802USA000280

PATIENT
  Age: 53 Year
  Sex: Female

DRUGS (2)
  1. TEMODAR [Suspect]
     Active Substance: TEMOZOLOMIDE
     Indication: PANCREATIC NEUROENDOCRINE TUMOUR METASTATIC
     Dosage: UNK
     Route: 048
  2. CAPECITABINE. [Concomitant]
     Active Substance: CAPECITABINE
     Dosage: UNK

REACTIONS (3)
  - Product use in unapproved indication [Unknown]
  - Vomiting [Unknown]
  - Nausea [Unknown]
